FAERS Safety Report 6752754-7 (Version None)
Quarter: 2010Q2

REPORT INFORMATION
  Report Type: 
  Country: None (occurrence: None)
  Receive Date: 20100528
  Receipt Date: 20100520
  Transmission Date: 20101027
  Serious: Yes (Other)
  Sender: FDA-Public Use
  Company Number: CIP10001115

PATIENT
  Age: 75 Year
  Sex: Female

DRUGS (11)
  1. ACTONEL [Suspect]
     Indication: OSTEOPOROSIS
     Dosage: 17.5 MG ONCE WEEKLY, ORAL
     Route: 048
     Dates: start: 20090310
  2. PREDNISOLONE [Concomitant]
  3. AZULFIDINE EN-TABS [Concomitant]
  4. CELCOX (CELECOXIB) [Concomitant]
  5. PROGRAF [Concomitant]
  6. METHYCOBAL (CYANOCOBALAMIN) [Concomitant]
  7. NORVASC [Concomitant]
  8. BUFFERIN [Concomitant]
  9. ISOSORBIDE DINITRATE [Concomitant]
  10. LISINOPRIL [Concomitant]
  11. WARFARIN SODIUM [Concomitant]

REACTIONS (1)
  - EMBOLISM [None]
